FAERS Safety Report 7094651-6 (Version None)
Quarter: 2010Q4

REPORT INFORMATION
  Report Type: 
  Country: None (occurrence: None)
  Receive Date: 20101110
  Receipt Date: 20090422
  Transmission Date: 20110411
  Serious: Yes (Death, Hospitalization)
  Sender: FDA-Public Use
  Company Number: BE-GENENTECH-309302

PATIENT
  Sex: Male
  Weight: 82 kg

DRUGS (5)
  1. MABTHERA [Suspect]
     Indication: CRYOGLOBULINAEMIA
     Dosage: 600 MG, 1/WEEK
     Route: 042
     Dates: start: 20080729, end: 20080819
  2. INDERAL [Concomitant]
     Indication: PORTAL HYPERTENSION
     Dosage: 10 MG, QD
     Route: 048
  3. OMEPRAZOLE [Concomitant]
     Indication: PROPHYLAXIS AGAINST GASTROINTESTINAL ULCER
     Dosage: 20 MG, QD
     Route: 048
  4. CONTRAMAL [Concomitant]
     Indication: SKIN ULCER
     Dosage: 400 MG, PRN
     Route: 048
  5. INSULIN [Concomitant]
     Indication: TYPE 2 DIABETES MELLITUS
     Dosage: 36 U, UNK
     Route: 058

REACTIONS (2)
  - PNEUMONIA [None]
  - PULMONARY SEPSIS [None]
